FAERS Safety Report 8370097-5 (Version None)
Quarter: 2012Q2

REPORT INFORMATION
  Report Type: 
  Country: None (occurrence: None)
  Receive Date: 20120518
  Receipt Date: 20120511
  Transmission Date: 20120825
  Serious: Yes (Other)
  Sender: FDA-Public Use
  Company Number: US-JNJFOC-20120513127

PATIENT
  Sex: Female

DRUGS (1)
  1. LISTERINE ADVANCED MOUTHWASH WITH TARTAR PROTECTION [Suspect]
     Indication: PRODUCT USED FOR UNKNOWN INDICATION
     Route: 048

REACTIONS (3)
  - DRUG ABUSE [None]
  - DEPENDENCE [None]
  - INCORRECT ROUTE OF DRUG ADMINISTRATION [None]
